FAERS Safety Report 5713518-6 (Version None)
Quarter: 2008Q2

REPORT INFORMATION
  Report Type: 
  Country: None (occurrence: None)
  Receive Date: 20080422
  Receipt Date: 20080414
  Transmission Date: 20081010
  Serious: Yes (Other)
  Sender: FDA-Public Use
  Company Number: US-ELI_LILLY_AND_COMPANY-US200804003513

PATIENT
  Sex: Male

DRUGS (2)
  1. HUMALOG MIX 75/25 [Suspect]
     Indication: DIABETES MELLITUS
     Dosage: 70 U, EACH MORNING
     Dates: start: 19980101
  2. HUMALOG MIX 75/25 [Suspect]
     Dosage: 75 U, EACH EVENING
     Dates: start: 19980101

REACTIONS (3)
  - BLINDNESS UNILATERAL [None]
  - OPTIC ISCHAEMIC NEUROPATHY [None]
  - VISUAL ACUITY REDUCED [None]
